FAERS Safety Report 7907337-X (Version None)
Quarter: 2011Q4

REPORT INFORMATION
  Report Type: 
  Country: None (occurrence: None)
  Receive Date: 20111110
  Receipt Date: 20111026
  Transmission Date: 20120403
  Serious: Yes (Other)
  Sender: FDA-Public Use
  Company Number: NL-GLAXOSMITHKLINE-B0760493A

PATIENT
  Sex: Female

DRUGS (5)
  1. PYRIDOXINE HCL [Concomitant]
     Dosage: 100MG PER DAY
  2. PANTOPRAZOLE [Concomitant]
     Dosage: 20MG PER DAY
  3. ALPRAZOLAM [Concomitant]
     Dosage: 2.5MG THREE TIMES PER DAY
  4. SLOW-K [Concomitant]
     Dosage: 600MG THREE TIMES PER DAY
  5. LAMICTAL [Suspect]
     Indication: BIPOLAR DISORDER
     Dosage: 25MG PER DAY
     Route: 065
     Dates: start: 20110912, end: 20111011

REACTIONS (1)
  - VISUAL ACUITY REDUCED [None]
